FAERS Safety Report 19719976 (Version 1)
Quarter: 2021Q3

REPORT INFORMATION
  Report Type: Spontaneous
  Country: US (occurrence: US)
  Receive Date: 20210818
  Receipt Date: 20210818
  Transmission Date: 20211014
  Serious: Yes (Other)
  Sender: FDA-Public Use
  Company Number: US-PFIZER INC-202101011881

PATIENT
  Age: 63 Year
  Sex: Female

DRUGS (1)
  1. IBRANCE [Suspect]
     Active Substance: PALBOCICLIB
     Indication: BREAST CANCER FEMALE
     Dosage: 125 MG, CYCLIC (DAILY FOR 21 SAYS ON, THEN 7 DAYS OFF)
     Route: 048
     Dates: start: 202104

REACTIONS (3)
  - Erythema [Unknown]
  - White blood cell count decreased [Unknown]
  - Pain in jaw [Unknown]
